FAERS Safety Report 21666595 (Version 1)
Quarter: 2022Q4

REPORT INFORMATION
  Report Type: Spontaneous
  Country: US (occurrence: US)
  Receive Date: 20221201
  Receipt Date: 20221201
  Transmission Date: 20230113
  Serious: No
  Sender: FDA-Public Use
  Company Number: US-ABBVIE-4185561

PATIENT
  Sex: Male

DRUGS (2)
  1. LEVOTHYROXINE [Suspect]
     Active Substance: LEVOTHYROXINE
     Indication: Hypothyroidism
     Route: 048
  2. LEVOXYL [Suspect]
     Active Substance: LEVOTHYROXINE SODIUM
     Indication: Hypothyroidism

REACTIONS (9)
  - Hyperhidrosis [Unknown]
  - Off label use [Unknown]
  - Weight increased [Unknown]
  - Product solubility abnormal [Unknown]
  - Temperature regulation disorder [Unknown]
  - Hot flush [Unknown]
  - Hypothyroidism [Unknown]
  - Initial insomnia [Unknown]
  - Drug ineffective [Unknown]
